FAERS Safety Report 8394341-3 (Version None)
Quarter: 2012Q2

REPORT INFORMATION
  Report Type: 
  Country: None (occurrence: None)
  Receive Date: 20120530
  Receipt Date: 20120522
  Transmission Date: 20120825
  Serious: Yes (Hospitalization, Other)
  Sender: FDA-Public Use
  Company Number: IT-JNJFOC-20120502576

PATIENT
  Age: 61 Year
  Sex: Male

DRUGS (6)
  1. NADROPARIN [Interacting]
     Indication: DEEP VEIN THROMBOSIS
     Route: 058
  2. HYDROMORPHONE HCL [Interacting]
     Indication: PRODUCT USED FOR UNKNOWN INDICATION
     Route: 048
  3. PARENTERAL NUTRITIONAL SUPPORT [Concomitant]
     Indication: DYSPHAGIA
     Route: 051
  4. LEVOFLOXACIN [Suspect]
     Indication: BACTERIAL INFECTION
     Route: 048
  5. GLYBURIDE [Interacting]
     Indication: TYPE 2 DIABETES MELLITUS
     Route: 048
  6. METFORMIN HCL [Interacting]
     Indication: TYPE 2 DIABETES MELLITUS
     Route: 048

REACTIONS (3)
  - BLOOD GLUCOSE DECREASED [None]
  - UNRESPONSIVE TO STIMULI [None]
  - DRUG INTERACTION [None]
